FAERS Safety Report 9072098 (Version 1)
Quarter: 2013Q1

REPORT INFORMATION
  Report Type: Report from Study
  Country: GB (occurrence: GB)
  Receive Date: 20130129
  Receipt Date: 20130129
  Transmission Date: 20140127
  Serious: Yes (Hospitalization, Other)
  Sender: FDA-Public Use
  Company Number: GB-ROCHE-1184839

PATIENT
  Age: 97 Year
  Sex: Male

DRUGS (7)
  1. RANIBIZUMAB [Suspect]
     Indication: AGE-RELATED MACULAR DEGENERATION
     Route: 050
     Dates: start: 20120823
  2. RANIBIZUMAB [Suspect]
     Route: 050
     Dates: start: 20120920
  3. RANIBIZUMAB [Suspect]
     Route: 050
     Dates: start: 20130122
  4. CALCICHEW [Concomitant]
     Route: 065
     Dates: end: 20121018
  5. CALCICHEW [Concomitant]
     Route: 065
     Dates: start: 20130120
  6. ALENDRONIC ACID [Concomitant]
     Route: 065
     Dates: end: 20121018
  7. ALENDRONIC ACID [Concomitant]
     Route: 065
     Dates: start: 20130120

REACTIONS (2)
  - Arthralgia [Recovering/Resolving]
  - Fall [Unknown]
